FAERS Safety Report 6213157-7 (Version None)
Quarter: 2009Q2

REPORT INFORMATION
  Report Type: 
  Country: None (occurrence: None)
  Receive Date: 20090603
  Receipt Date: 20090529
  Transmission Date: 20091009
  Serious: Yes (Hospitalization, Other)
  Sender: FDA-Public Use
  Company Number: US-ASTRAZENECA-2006UW04609

PATIENT
  Age: 68 Year
  Sex: Female
  Weight: 80.7 kg

DRUGS (12)
  1. ARIMIDEX [Suspect]
     Indication: BREAST CANCER
     Route: 048
     Dates: start: 20050601
  2. IMDUR [Concomitant]
  3. ATENOLOL [Concomitant]
  4. TIAZAC [Concomitant]
  5. VALSARTAN [Concomitant]
  6. ACIPHEX [Concomitant]
  7. SYNTHROID [Concomitant]
  8. DETROL [Concomitant]
  9. NITROGLYCERIN [Concomitant]
  10. CARAFATE [Concomitant]
  11. COUMADIN [Concomitant]
  12. LOVENOX [Concomitant]

REACTIONS (9)
  - ANTICOAGULATION DRUG LEVEL [None]
  - ARTHRALGIA [None]
  - BLOOD PRESSURE DECREASED [None]
  - CYSTITIS [None]
  - KIDNEY INFECTION [None]
  - PAIN IN EXTREMITY [None]
  - RENAL ISCHAEMIA [None]
  - THROMBOSIS [None]
  - WEIGHT INCREASED [None]
